FAERS Safety Report 25837752 (Version 1)
Quarter: 2025Q3

REPORT INFORMATION
  Report Type: Spontaneous
  Country: CL (occurrence: CL)
  Receive Date: 20250923
  Receipt Date: 20250923
  Transmission Date: 20251020
  Serious: Yes (Other)
  Sender: BAUSCH AND LOMB
  Company Number: CL-BAUSCH-BH-2025-017671

PATIENT
  Age: 25 Year
  Sex: Female

DRUGS (2)
  1. AZATHIOPRINE [Suspect]
     Active Substance: AZATHIOPRINE
     Indication: ASIA syndrome
     Route: 065
  2. PREDNISONE [Suspect]
     Active Substance: PREDNISONE
     Indication: ASIA syndrome
     Route: 048

REACTIONS (2)
  - ASIA syndrome [Recovered/Resolved]
  - Condition aggravated [Recovered/Resolved]
